FAERS Safety Report 4526623-7 (Version None)
Quarter: 2004Q4

REPORT INFORMATION
  Report Type: 
  Country: None (occurrence: None)
  Receive Date: 20041213
  Receipt Date: 20041115
  Transmission Date: 20050328
  Serious: Yes (Other)
  Sender: FDA-Public Use
  Company Number: US_0411107951

PATIENT
  Age: 38 Year
  Sex: Female
  Weight: 82 kg

DRUGS (17)
  1. ZYPREXA [Suspect]
     Dosage: 15 MG/1 DAY
     Dates: start: 19980101, end: 20030408
  2. PROZAC [Concomitant]
  3. ZOLOFT (SERTRAILINE HYDROCHLORIDE) [Concomitant]
  4. MULTI-VITAMIN [Concomitant]
  5. MINERALS NOS [Concomitant]
  6. PAXIL [Concomitant]
  7. KLONOPIN [Concomitant]
  8. NICOTINE DERMAL PATCH (NICOTINE RESIN) [Concomitant]
  9. EFFEXOR [Concomitant]
  10. SERZONE [Concomitant]
  11. RESTORIL [Concomitant]
  12. GEODON [Concomitant]
  13. NICOTINELL GUM (NICOTINE) [Concomitant]
  14. NICOTROL (NICOTINE) [Concomitant]
  15. FERROUS SULFATE TAB [Concomitant]
  16. EFFEXOR XR [Concomitant]
  17. RISPERDAL [Concomitant]

REACTIONS (24)
  - ALANINE AMINOTRANSFERASE INCREASED [None]
  - BINGE EATING [None]
  - BLOOD CHOLESTEROL INCREASED [None]
  - BLOOD GLUCOSE INCREASED [None]
  - BLOOD TRIGLYCERIDES INCREASED [None]
  - COMA [None]
  - CONJUNCTIVITIS [None]
  - DIABETES MELLITUS NON-INSULIN-DEPENDENT [None]
  - ELECTROCARDIOGRAM QT PROLONGED [None]
  - GASTROENTERITIS VIRAL [None]
  - GASTROOESOPHAGEAL REFLUX DISEASE [None]
  - INJURY [None]
  - INTERVERTEBRAL DISC DISORDER [None]
  - JOINT SPRAIN [None]
  - LACERATION [None]
  - LETHARGY [None]
  - MENORRHAGIA [None]
  - PRURITUS [None]
  - RHINITIS ALLERGIC [None]
  - SINUSITIS [None]
  - UTERINE POLYP [None]
  - VIRAL UPPER RESPIRATORY TRACT INFECTION [None]
  - VISION BLURRED [None]
  - WEIGHT INCREASED [None]
